FAERS Safety Report 12436158 (Version 2)
Quarter: 2017Q4

REPORT INFORMATION
  Report Type: Spontaneous
  Country: IT (occurrence: IT)
  Receive Date: 20160605
  Receipt Date: 20171016
  Transmission Date: 20180320
  Serious: Yes (Other)
  Sender: FDA-Public Use
  Company Number: IT-TEVA-664791ACC

PATIENT
  Age: 59 Year
  Sex: Male

DRUGS (7)
  1. ETANERCEPT [Suspect]
     Active Substance: ETANERCEPT
     Indication: PSORIASIS
     Dosage: 50 MG WEEKLY
     Route: 065
  2. ETANERCEPT [Suspect]
     Active Substance: ETANERCEPT
     Route: 065
     Dates: start: 2009
  3. CYCLOSPORINE. [Suspect]
     Active Substance: CYCLOSPORINE
     Indication: PSORIASIS
     Dosage: 3 MG/KG/DAILY
  4. DAPSONE. [Suspect]
     Active Substance: DAPSONE
     Indication: PEMPHIGOID
     Dosage: 100 MILLIGRAM DAILY;
  5. DAPSONE. [Suspect]
     Active Substance: DAPSONE
     Dosage: 10 MILLIGRAM DAILY;
  6. EFALIZUMAB [Suspect]
     Active Substance: EFALIZUMAB
     Indication: PSORIASIS
     Dosage: 1 MG/KG/WEEKLY
     Dates: start: 2007, end: 2009
  7. DELTACORTENE ^25 MG COMPRESSE^ 10 COMPRESSE - ( BRUNO FARMACEUTICI S.P [Suspect]
     Active Substance: PREDNISONE
     Indication: PEMPHIGOID
     Dosage: 25 MILLIGRAM DAILY;
     Route: 048

REACTIONS (1)
  - Papillary cystadenoma lymphomatosum [Recovered/Resolved]

NARRATIVE: CASE EVENT DATE: 201309
